FAERS Safety Report 4634322-6 (Version None)
Quarter: 2005Q2

REPORT INFORMATION
  Report Type: 
  Country: None (occurrence: None)
  Receive Date: 20050413
  Receipt Date: 20041203
  Transmission Date: 20051028
  Serious: Yes (Disabling)
  Sender: FDA-Public Use
  Company Number: SEWYE257703DEC04

PATIENT
  Sex: Male

DRUGS (7)
  1. ENBREL [Suspect]
     Indication: RHEUMATOID ARTHRITIS
     Route: 058
     Dates: start: 19990101, end: 20040901
  2. CELEBREX [Concomitant]
     Route: 048
  3. NOZINAN [Concomitant]
     Route: 048
  4. FOSAMAX [Concomitant]
     Indication: OSTEOPOROSIS
     Route: 048
  5. PREDNISOLONE [Concomitant]
     Indication: RHEUMATOID ARTHRITIS
     Route: 048
  6. CALCIGRAN [Concomitant]
     Indication: OSTEOPOROSIS
     Route: 048
  7. TRAMADOL HCL [Concomitant]
     Route: 048

REACTIONS (3)
  - MYCOBACTERIAL INFECTION [None]
  - PULMONARY FIBROSIS [None]
  - RESPIRATORY FAILURE [None]
